FAERS Safety Report 20060122 (Version 1)
Quarter: 2021Q4

REPORT INFORMATION
  Report Type: Spontaneous
  Country: CA (occurrence: CA)
  Receive Date: 20211111
  Receipt Date: 20211111
  Transmission Date: 20220303
  Serious: Yes (Other)
  Sender: FDA-Public Use
  Company Number: CA-ABBVIE-21K-028-4153751-00

PATIENT
  Age: 61 Year
  Sex: Male

DRUGS (3)
  1. RINVOQ [Suspect]
     Active Substance: UPADACITINIB
     Indication: Psoriatic arthropathy
     Route: 048
     Dates: start: 202107
  2. HUMIRA [Suspect]
     Active Substance: ADALIMUMAB
     Indication: Psoriatic arthropathy
     Route: 058
  3. IXEKIZUMAB [Suspect]
     Active Substance: IXEKIZUMAB
     Indication: Product used for unknown indication
     Route: 065

REACTIONS (11)
  - Tendon rupture [Unknown]
  - Frequent bowel movements [Recovering/Resolving]
  - Guttate psoriasis [Not Recovered/Not Resolved]
  - Psoriasis [Not Recovered/Not Resolved]
  - Joint effusion [Unknown]
  - Diarrhoea [Recovering/Resolving]
  - Colitis [Unknown]
  - Pain [Unknown]
  - Dactylitis [Unknown]
  - Pain [Unknown]
  - Osteoarthritis [Unknown]

NARRATIVE: CASE EVENT DATE: 20181001
